FAERS Safety Report 25419213 (Version 1)
Quarter: 2025Q2

REPORT INFORMATION
  Report Type: Spontaneous
  Country: CN (occurrence: CN)
  Receive Date: 20250610
  Receipt Date: 20250610
  Transmission Date: 20250716
  Serious: Yes (Hospitalization)
  Sender: BEIGENE
  Company Number: CN-BEIGENE-BGN-2025-009008

PATIENT
  Age: 53 Year
  Weight: 65 kg

DRUGS (34)
  1. TISLELIZUMAB [Suspect]
     Active Substance: TISLELIZUMAB
     Indication: Pancreatic carcinoma
  2. TISLELIZUMAB [Suspect]
     Active Substance: TISLELIZUMAB
  3. TISLELIZUMAB [Suspect]
     Active Substance: TISLELIZUMAB
     Route: 041
  4. TISLELIZUMAB [Suspect]
     Active Substance: TISLELIZUMAB
     Route: 041
  5. TISLELIZUMAB [Suspect]
     Active Substance: TISLELIZUMAB
     Route: 041
  6. TISLELIZUMAB [Suspect]
     Active Substance: TISLELIZUMAB
     Route: 041
  7. TISLELIZUMAB [Suspect]
     Active Substance: TISLELIZUMAB
  8. TISLELIZUMAB [Suspect]
     Active Substance: TISLELIZUMAB
  9. TISLELIZUMAB [Suspect]
     Active Substance: TISLELIZUMAB
     Route: 041
  10. TISLELIZUMAB [Suspect]
     Active Substance: TISLELIZUMAB
  11. TISLELIZUMAB [Suspect]
     Active Substance: TISLELIZUMAB
  12. TISLELIZUMAB [Suspect]
     Active Substance: TISLELIZUMAB
     Route: 041
  13. TISLELIZUMAB [Suspect]
     Active Substance: TISLELIZUMAB
  14. TISLELIZUMAB [Suspect]
     Active Substance: TISLELIZUMAB
  15. TISLELIZUMAB [Suspect]
     Active Substance: TISLELIZUMAB
     Route: 041
  16. TISLELIZUMAB [Suspect]
     Active Substance: TISLELIZUMAB
     Route: 041
  17. METHIMAZOLE [Suspect]
     Active Substance: METHIMAZOLE
     Indication: Hyperthyroidism
     Route: 048
  18. METHIMAZOLE [Suspect]
     Active Substance: METHIMAZOLE
  19. GIMERACIL\OTERACIL\TEGAFUR [Concomitant]
     Active Substance: GIMERACIL\OTERACIL POTASSIUM\TEGAFUR
     Indication: Pancreatic carcinoma
     Dosage: 50 MILLIGRAM, BID, D1-D14
  20. GIMERACIL\OTERACIL\TEGAFUR [Concomitant]
     Active Substance: GIMERACIL\OTERACIL POTASSIUM\TEGAFUR
     Dosage: 50 MILLIGRAM, BID, D1-D14
     Route: 048
  21. GIMERACIL\OTERACIL\TEGAFUR [Concomitant]
     Active Substance: GIMERACIL\OTERACIL POTASSIUM\TEGAFUR
     Dosage: 50 MILLIGRAM, BID, D1-D14
     Route: 048
  22. GIMERACIL\OTERACIL\TEGAFUR [Concomitant]
     Active Substance: GIMERACIL\OTERACIL POTASSIUM\TEGAFUR
     Dosage: 50 MILLIGRAM, BID, D1-D14
  23. GIMERACIL\OTERACIL\TEGAFUR [Concomitant]
     Active Substance: GIMERACIL\OTERACIL POTASSIUM\TEGAFUR
     Dosage: 50 MILLIGRAM, BID, D1-D14
  24. GIMERACIL\OTERACIL\TEGAFUR [Concomitant]
     Active Substance: GIMERACIL\OTERACIL POTASSIUM\TEGAFUR
     Dosage: 50 MILLIGRAM, BID, D1-D14
     Route: 048
  25. GIMERACIL\OTERACIL\TEGAFUR [Concomitant]
     Active Substance: GIMERACIL\OTERACIL POTASSIUM\TEGAFUR
     Dosage: 50 MILLIGRAM, BID, D1-D14
  26. GIMERACIL\OTERACIL\TEGAFUR [Concomitant]
     Active Substance: GIMERACIL\OTERACIL POTASSIUM\TEGAFUR
     Dosage: 50 MILLIGRAM, BID, D1-D14
     Route: 048
  27. PACLITAXEL [Concomitant]
     Active Substance: PACLITAXEL
     Indication: Pancreatic carcinoma
  28. PACLITAXEL [Concomitant]
     Active Substance: PACLITAXEL
     Route: 041
  29. PACLITAXEL [Concomitant]
     Active Substance: PACLITAXEL
     Route: 041
  30. PACLITAXEL [Concomitant]
     Active Substance: PACLITAXEL
  31. PACLITAXEL [Concomitant]
     Active Substance: PACLITAXEL
  32. PACLITAXEL [Concomitant]
     Active Substance: PACLITAXEL
     Route: 041
  33. PACLITAXEL [Concomitant]
     Active Substance: PACLITAXEL
  34. PACLITAXEL [Concomitant]
     Active Substance: PACLITAXEL
     Route: 041

REACTIONS (3)
  - Acute kidney injury [Recovering/Resolving]
  - Hypothyroidism [Recovering/Resolving]
  - Cystitis [Recovering/Resolving]
